FAERS Safety Report 4782799-8 (Version None)
Quarter: 2005Q3

REPORT INFORMATION
  Report Type: 
  Country: None (occurrence: None)
  Receive Date: 20050914
  Receipt Date: 20040908
  Transmission Date: 20060218
  Serious: Yes (Hospitalization)
  Sender: FDA-Public Use
  Company Number: 163-20785-03090579

PATIENT
  Age: 71 Year
  Sex: Male

DRUGS (32)
  1. THALOMID [Suspect]
     Indication: METASTATIC MALIGNANT MELANOMA
     Dosage: 200 MG, QD, ORAL
     Route: 048
     Dates: start: 20030201, end: 20030101
  2. THALOMID [Suspect]
     Dosage: 50+100 MG, ALTERNATING DAYS, ORAL
     Route: 048
     Dates: start: 20030101, end: 20040708
  3. THALOMID [Suspect]
     Dosage: 100+150MG, ALTERNATING DAYS, PO
     Route: 048
     Dates: end: 20040701
  4. BETA BLOCKER (BETA BLOCKING AGENTS) [Concomitant]
     Indication: DRUG USE FOR UNKNOWN INDICATION
  5. TEMOZOLOMIDE [Concomitant]
  6. ACETYLSALICYLIC ACID SRT [Concomitant]
  7. COUMADIN [Concomitant]
  8. OXYBUTYNIN [Concomitant]
  9. LACTULOSE [Concomitant]
  10. MAALOX FAST BLOCKER [Concomitant]
  11. NITROGLYCERIN [Concomitant]
  12. BACITRACIN [Concomitant]
  13. TAMBOCOR [Concomitant]
  14. METRONIDAZOLE [Concomitant]
  15. RANITIDINE [Concomitant]
  16. PROCHLORPERAZINE MALEATE [Concomitant]
  17. RABEPRAZOLE SODIUM [Concomitant]
  18. CYCLOBENZAPRINE [Concomitant]
  19. IBUPROFEN [Concomitant]
  20. NAPROXEN [Concomitant]
  21. PIROXICAM [Concomitant]
  22. POLYMYXIN (POLYMYXIN B) [Concomitant]
  23. ALBUTEROL [Concomitant]
  24. FLUOCINONIDE [Concomitant]
  25. LIDOCAINE VISCOUS (LIDOCAINE HYDROCHLORIDE) [Concomitant]
  26. AQUA PHILLIC OINTMENT [Concomitant]
  27. SENNOSIDES [Concomitant]
  28. AC NEOMYICONE [Concomitant]
  29. SYNTHROID [Concomitant]
  30. GABAPENTIN [Concomitant]
  31. DILANTIN [Concomitant]
  32. OMEPRAZOLE [Concomitant]

REACTIONS (18)
  - BRADYCARDIA [None]
  - CHEST PAIN [None]
  - CONSTIPATION [None]
  - DEHYDRATION [None]
  - DIARRHOEA [None]
  - DIFFICULTY IN WALKING [None]
  - DISEASE PROGRESSION [None]
  - DRY MOUTH [None]
  - DYSPNOEA [None]
  - FALL [None]
  - HYPOTENSION [None]
  - METASTASES TO CENTRAL NERVOUS SYSTEM [None]
  - METASTASES TO LUNG [None]
  - NAUSEA [None]
  - NEUROPATHY [None]
  - OEDEMA [None]
  - PARAESTHESIA [None]
  - VOMITING [None]
